FAERS Safety Report 8114926-9 (Version None)
Quarter: 2012Q1

REPORT INFORMATION
  Report Type: 
  Country: None (occurrence: None)
  Receive Date: 20120206
  Receipt Date: 20120201
  Transmission Date: 20120608
  Serious: No
  Sender: FDA-Public Use
  Company Number: US-PFIZER INC-2008101547

PATIENT
  Sex: Male
  Weight: 102.27 kg

DRUGS (3)
  1. TOFRANIL [Suspect]
     Dosage: UNK
  2. NAVANE [Suspect]
     Dosage: 5 MG, 2X/DAY
     Route: 048
     Dates: start: 19820701
  3. NAVANE [Suspect]
     Dosage: 2 MG, 2X/DAY

REACTIONS (4)
  - TACHYPHRENIA [None]
  - BRADYPHRENIA [None]
  - SOMNOLENCE [None]
  - FATIGUE [None]
